FAERS Safety Report 23068121 (Version 1)
Quarter: 2023Q4

REPORT INFORMATION
  Report Type: Spontaneous
  Country: US (occurrence: US)
  Receive Date: 20231016
  Receipt Date: 20231016
  Transmission Date: 20240110
  Serious: Yes (Other)
  Sender: FDA-Public Use
  Company Number: US-ABBVIE-5450710

PATIENT
  Sex: Female

DRUGS (1)
  1. DALVANCE [Suspect]
     Active Substance: DALBAVANCIN
     Indication: Medical device site joint infection
     Dosage: TIME INTERVAL: AS NECESSARY
     Route: 042

REACTIONS (3)
  - Renal failure [Unknown]
  - Erythema [Unknown]
  - Breast swelling [Unknown]
